FAERS Safety Report 5220735-0 (Version None)
Quarter: 2007Q1

REPORT INFORMATION
  Report Type: 
  Country: None (occurrence: None)
  Receive Date: 20070126
  Receipt Date: 20070119
  Transmission Date: 20070707
  Serious: Yes (Hospitalization)
  Sender: FDA-Public Use
  Company Number: JP-AVENTIS-200613943JP

PATIENT
  Age: 34 Year
  Sex: Male
  Weight: 65 kg

DRUGS (4)
  1. ALLEGRA [Suspect]
     Indication: DERMATITIS ATOPIC
     Dates: start: 20060301, end: 20060601
  2. ALLEGRA [Suspect]
     Route: 048
     Dates: start: 20060801, end: 20061205
  3. OURENGEDOKUTOU [Suspect]
     Indication: DERMATITIS ATOPIC
     Dates: start: 20060301, end: 20060601
  4. OURENGEDOKUTOU [Suspect]
     Route: 048
     Dates: start: 20060801, end: 20061205

REACTIONS (1)
  - HEPATIC FUNCTION ABNORMAL [None]
